FAERS Safety Report 9619816 (Version 1)
Quarter: 2013Q4

REPORT INFORMATION
  Report Type: Spontaneous
  Country: US (occurrence: US)
  Receive Date: 20131014
  Receipt Date: 20131014
  Transmission Date: 20140711
  Serious: Yes (Other)
  Sender: FDA-Public Use
  Company Number: US-INCYTE CORPORATION-2013IN002371

PATIENT
  Sex: 0

DRUGS (1)
  1. JAKAFI [Suspect]
     Dosage: 5 MG, BID
     Route: 048

REACTIONS (1)
  - Blood bilirubin increased [Unknown]
